FAERS Safety Report 7557797-1 (Version None)
Quarter: 2011Q2

REPORT INFORMATION
  Report Type: 
  Country: None (occurrence: None)
  Receive Date: 20110620
  Receipt Date: 20110613
  Transmission Date: 20111010
  Serious: Yes (Death, Life-Threatening, Hospitalization, Other)
  Sender: FDA-Public Use
  Company Number: US-BRISTOL-MYERS SQUIBB COMPANY-15126246

PATIENT
  Age: 91 Year
  Sex: Male

DRUGS (7)
  1. DIOVAN [Concomitant]
     Dates: start: 20050101, end: 20100629
  2. DIGOXIN [Concomitant]
     Dates: start: 20100519, end: 20100629
  3. AVODART [Concomitant]
     Dates: start: 20070101
  4. PLACEBO [Suspect]
     Indication: THROMBOSIS PROPHYLAXIS
     Route: 048
     Dates: start: 20091216
  5. WARFARIN SODIUM [Suspect]
     Indication: THROMBOSIS PROPHYLAXIS
     Dosage: 1 DF= 6/6/4MG
     Route: 048
     Dates: start: 20091216, end: 20100628
  6. FLOMAX [Concomitant]
     Dates: start: 20050101
  7. LIPITOR [Concomitant]
     Dates: start: 20050101

REACTIONS (5)
  - ENTEROCOCCAL BACTERAEMIA [None]
  - DEHYDRATION [None]
  - RETINAL ARTERY EMBOLISM [None]
  - LETHARGY [None]
  - GASTROINTESTINAL HAEMORRHAGE [None]
